FAERS Safety Report 6233417-3 (Version None)
Quarter: 2009Q2

REPORT INFORMATION
  Report Type: 
  Country: None (occurrence: None)
  Receive Date: 20090616
  Receipt Date: 20090616
  Transmission Date: 20091009
  Serious: Yes (Other)
  Sender: FDA-Public Use
  Company Number: None

PATIENT
  Age: 49 Year
  Sex: Female
  Weight: 64.4108 kg

DRUGS (3)
  1. FEMHRT [Suspect]
     Indication: HOT FLUSH
     Dosage: 0.5 MG DAILY PO
     Route: 048
     Dates: start: 20081001, end: 20090613
  2. FEMHRT [Suspect]
     Indication: MENOPAUSE
     Dosage: 0.5 MG DAILY PO
     Route: 048
     Dates: start: 20081001, end: 20090613
  3. FEMHRT [Suspect]
     Indication: NIGHT SWEATS
     Dosage: 0.5 MG DAILY PO
     Route: 048
     Dates: start: 20081001, end: 20090613

REACTIONS (5)
  - ASTHENIA [None]
  - DEPRESSION [None]
  - FATIGUE [None]
  - MOOD SWINGS [None]
  - SUICIDAL IDEATION [None]
